FAERS Safety Report 8601133-6 (Version None)
Quarter: 2012Q2

REPORT INFORMATION
  Report Type: 
  Country: None (occurrence: None)
  Receive Date: 20120423
  Receipt Date: 20100106
  Transmission Date: 20120825
  Serious: Yes (Other)
  Sender: FDA-Public Use
  Company Number: PHHY2010US01096

PATIENT
  Sex: Female

DRUGS (1)
  1. FEMARA [Suspect]
     Dosage: , ORAL
     Route: 048
     Dates: start: 20090301

REACTIONS (2)
  - ANGIOEDEMA [None]
  - URTICARIA [None]
